FAERS Safety Report 9946475 (Version 1)
Quarter: 2014Q1

REPORT INFORMATION
  Report Type: Report from Study
  Country: US (occurrence: US)
  Receive Date: 20140303
  Receipt Date: 20140303
  Transmission Date: 20141002
  Serious: No
  Sender: FDA-Public Use
  Company Number: US-ABBVIE-13P-163-1063207-00

PATIENT
  Age: 52 Year
  Sex: Female

DRUGS (2)
  1. HUMIRA [Suspect]
     Indication: CROHN^S DISEASE
     Dates: start: 201210
  2. VITAMIN D NOS [Concomitant]
     Indication: VITAMIN D DECREASED

REACTIONS (4)
  - Vitamin D decreased [Unknown]
  - Injection site pain [Recovered/Resolved]
  - Injection site induration [Recovered/Resolved]
  - Injection site erythema [Recovered/Resolved]
